FAERS Safety Report 7624584-5 (Version None)
Quarter: 2011Q3

REPORT INFORMATION
  Report Type: 
  Country: None (occurrence: None)
  Receive Date: 20110720
  Receipt Date: 20110712
  Transmission Date: 20111222
  Serious: Yes (Other)
  Sender: FDA-Public Use
  Company Number: US-BAYER-2011-061333

PATIENT
  Sex: Female

DRUGS (1)
  1. MIRENA [Suspect]
     Indication: CONTRACEPTION
     Dosage: 20 MCG/24HR, CONT
     Route: 015
     Dates: start: 20100831

REACTIONS (9)
  - DYSPAREUNIA [None]
  - LIBIDO DECREASED [None]
  - GENITAL DISCOMFORT [None]
  - GENITAL HAEMORRHAGE [None]
  - MOOD ALTERED [None]
  - GENITAL PAIN [None]
  - VULVOVAGINAL SWELLING [None]
  - EMOTIONAL DISTRESS [None]
  - CRYING [None]
